FAERS Safety Report 8554213-8 (Version None)
Quarter: 2012Q3

REPORT INFORMATION
  Report Type: 
  Country: None (occurrence: None)
  Receive Date: 20120731
  Receipt Date: 20120726
  Transmission Date: 20120928
  Serious: Yes (Disabling)
  Sender: FDA-Public Use
  Company Number: IT-ELI_LILLY_AND_COMPANY-IT201112004507

PATIENT
  Sex: Female

DRUGS (8)
  1. ASPIRIN [Concomitant]
     Indication: ACUTE MYOCARDIAL INFARCTION
     Dosage: 500 MG, UNK
     Route: 042
     Dates: start: 20111203, end: 20111203
  2. ASPIRIN [Concomitant]
     Dosage: 100 MG, UNK
  3. EFFIENT [Suspect]
     Indication: MYOCARDIAL INFARCTION
     Dosage: 60 MG, UNK
     Route: 048
     Dates: start: 20111203, end: 20111203
  4. LEVOTHYROXINE SODIUM [Concomitant]
  5. MODURETIC 5-50 [Concomitant]
  6. HEPARIN [Concomitant]
     Dosage: 1000 IU, UNK
     Route: 042
     Dates: start: 20111203, end: 20111203
  7. ESOPRAL [Concomitant]
     Dosage: 40 MG, UNK
  8. ROSUVASTATIN [Concomitant]
     Dosage: 40 MG, UNK

REACTIONS (3)
  - BONE MARROW DISORDER [None]
  - PARAPLEGIA [None]
  - EXTRADURAL HAEMATOMA [None]
